FAERS Safety Report 8056216-9 (Version None)
Quarter: 2012Q1

REPORT INFORMATION
  Report Type: 
  Country: None (occurrence: None)
  Receive Date: 20120119
  Receipt Date: 20120111
  Transmission Date: 20120608
  Serious: Yes (Other)
  Sender: FDA-Public Use
  Company Number: CHPA2012US001053

PATIENT
  Age: 57 Year
  Sex: Female

DRUGS (8)
  1. LISINOPRIL [Concomitant]
     Indication: PROTEINURIA
     Dosage: UNK, UNK
  2. ESTROGENS CONJUGATED [Concomitant]
     Indication: HORMONE REPLACEMENT THERAPY
     Dosage: UNK, UNK
  3. ASPIRIN [Concomitant]
     Dosage: UNK, UNK
  4. IBUPROFEN [Suspect]
     Indication: HEADACHE
     Dosage: UNK, PRN
     Route: 048
     Dates: end: 20110901
  5. SIMVASTATIN [Concomitant]
     Indication: TYPE 2 DIABETES MELLITUS
     Dosage: UNK, UNK
  6. VICTOZA [Concomitant]
     Indication: TYPE 2 DIABETES MELLITUS
     Dosage: UNK, UNK
  7. NITROGLYCERIN [Concomitant]
     Indication: MICROVASCULAR ANGINA
     Dosage: 0.1 MG, UNK
     Route: 062
  8. LASIX [Concomitant]
     Indication: FLUID RETENTION
     Dosage: UNK, UNK

REACTIONS (6)
  - ADRENAL CYST [None]
  - BLOOD URINE PRESENT [None]
  - NEPHROLITHIASIS [None]
  - RENAL CYST [None]
  - HEPATIC CYST [None]
  - ABDOMINAL PAIN UPPER [None]
